FAERS Safety Report 18565773 (Version 2)
Quarter: 2020Q4

REPORT INFORMATION
  Report Type: Spontaneous
  Country: US (occurrence: US)
  Receive Date: 20201201
  Receipt Date: 20201228
  Transmission Date: 20210114
  Serious: Yes (Hospitalization, Other)
  Sender: FDA-Public Use
  Company Number: US-PURDUE-USA-2020-0178176

PATIENT
  Sex: Male

DRUGS (3)
  1. OXYCODONE HCL TABLETS (RHODES 91-490) [Suspect]
     Active Substance: OXYCODONE HYDROCHLORIDE
     Indication: PRODUCT USED FOR UNKNOWN INDICATION
     Dosage: UNK
     Route: 048
  2. HYDROMORPHONE TABLET (RHODES) [Suspect]
     Active Substance: HYDROMORPHONE
     Indication: PRODUCT USED FOR UNKNOWN INDICATION
     Dosage: UNK
     Route: 048
  3. OXYCONTIN [Suspect]
     Active Substance: OXYCODONE HYDROCHLORIDE
     Indication: PAIN IN EXTREMITY
     Dosage: 20 MG, TID
     Route: 048
     Dates: start: 201305

REACTIONS (8)
  - Loss of personal independence in daily activities [Unknown]
  - Aphasia [Unknown]
  - Cerebrovascular accident [Unknown]
  - Balance disorder [Unknown]
  - Speech disorder [Unknown]
  - Overdose [Unknown]
  - Bedridden [Unknown]
  - Fall [Unknown]

NARRATIVE: CASE EVENT DATE: 20130917
